FAERS Safety Report 7642135-6 (Version None)
Quarter: 2011Q3

REPORT INFORMATION
  Report Type: 
  Country: None (occurrence: None)
  Receive Date: 20110722
  Receipt Date: 20110721
  Transmission Date: 20111222
  Serious: Yes (Death, Life-Threatening)
  Sender: FDA-Public Use
  Company Number: 2011SP027841

PATIENT
  Age: 75 Year
  Sex: Male
  Weight: 38 kg

DRUGS (11)
  1. ALOSENN (SENNA LEAF) [Concomitant]
  2. PREDNISOLONE [Concomitant]
  3. TEMODAL [Suspect]
     Indication: GLIOBLASTOMA MULTIFORME
     Dosage: 150 MG/M2, QD, IV
     Route: 042
     Dates: start: 20110412, end: 20110425
  4. SENNA POD [Concomitant]
  5. BENAMBAX [Concomitant]
  6. BIOFERMIN [Concomitant]
  7. VALERIAN [Concomitant]
  8. ARTANE [Concomitant]
  9. E KEPPRA (LEVETIRACETAM) [Concomitant]
  10. FAMOTIDINE [Concomitant]
  11. EXCERGRAN [Concomitant]

REACTIONS (3)
  - GLIOBLASTOMA MULTIFORME [None]
  - DISEASE PROGRESSION [None]
  - HYPOKALAEMIA [None]
